FAERS Safety Report 4687515-6 (Version None)
Quarter: 2005Q2

REPORT INFORMATION
  Report Type: 
  Country: None (occurrence: None)
  Receive Date: 20050608
  Receipt Date: 20050608
  Transmission Date: 20051028
  Serious: Yes (Other)
  Sender: FDA-Public Use
  Company Number: None

PATIENT
  Age: 23 Year
  Sex: Male
  Weight: 74.8435 kg

DRUGS (1)
  1. LARIAM [Suspect]
     Indication: MALARIA PROPHYLAXIS
     Dosage: ONE TABLET    WEEK    ORAL
     Route: 048
     Dates: start: 19950601, end: 19960601

REACTIONS (2)
  - AFFECT LABILITY [None]
  - AGGRESSION [None]
